FAERS Safety Report 18334771 (Version 1)
Quarter: 2020Q4

REPORT INFORMATION
  Report Type: Other
  Country: CN (occurrence: CN)
  Receive Date: 20201001
  Receipt Date: 20201001
  Transmission Date: 20210113
  Serious: Yes (Life-Threatening, Hospitalization)
  Sender: FDA-Public Use
  Company Number: CN-US-PROVELL PHARMACEUTICALS LLC-9188170

PATIENT
  Age: 40 Year
  Sex: Female

DRUGS (3)
  1. LEVOTHYROXINE. [Suspect]
     Active Substance: LEVOTHYROXINE
     Indication: SUICIDE ATTEMPT
     Dosage: ATLEAST 15,000 UG
     Dates: start: 20190915
  2. DILTIAZEM. [Suspect]
     Active Substance: DILTIAZEM
     Indication: SUICIDE ATTEMPT
     Dates: start: 20190915
  3. AMLODIPINE [Suspect]
     Active Substance: AMLODIPINE BESYLATE
     Indication: SUICIDE ATTEMPT
     Dates: start: 20190915

REACTIONS (12)
  - Loss of consciousness [Recovered/Resolved]
  - Thyroxine increased [Recovering/Resolving]
  - Tri-iodothyronine increased [Recovered/Resolved]
  - Hyperhidrosis [Recovering/Resolving]
  - Intentional overdose [Unknown]
  - Suicide attempt [Unknown]
  - Haemodynamic instability [Recovered/Resolved]
  - Tri-iodothyronine free increased [Recovered/Resolved]
  - Hypotension [Recovered/Resolved]
  - Thyroxine free increased [Recovering/Resolving]
  - Blood thyroid stimulating hormone decreased [Recovering/Resolving]
  - Pyrexia [Recovering/Resolving]

NARRATIVE: CASE EVENT DATE: 20190915
